FAERS Safety Report 18041574 (Version 2)
Quarter: 2020Q3

REPORT INFORMATION
  Report Type: Report from Study
  Country: None (occurrence: US)
  Receive Date: 20200720
  Receipt Date: 20200830
  Transmission Date: 20201103
  Serious: Yes (Hospitalization, Other)
  Sender: FDA-Public Use
  Company Number: US-ABBVIE-20K-163-3448357-00

PATIENT
  Age: 59 Year
  Sex: Male
  Weight: 143.01 kg

DRUGS (1)
  1. HUMIRA [Suspect]
     Active Substance: ADALIMUMAB
     Indication: RHEUMATOID ARTHRITIS
     Route: 058
     Dates: start: 2017, end: 202006

REACTIONS (7)
  - Cognitive disorder [Unknown]
  - Suicidal ideation [Not Recovered/Not Resolved]
  - Appendicitis perforated [Unknown]
  - Renal failure [Not Recovered/Not Resolved]
  - Panic attack [Not Recovered/Not Resolved]
  - Appendicectomy [Recovered/Resolved]
  - Memory impairment [Unknown]

NARRATIVE: CASE EVENT DATE: 202006
